FAERS Safety Report 14853882 (Version 5)
Quarter: 2018Q4

REPORT INFORMATION
  Report Type: Spontaneous
  Country: US (occurrence: US)
  Receive Date: 20180507
  Receipt Date: 20181114
  Transmission Date: 20190204
  Serious: Yes (Hospitalization, Other)
  Sender: FDA-Public Use
  Company Number: US-009507513-1805USA002088

PATIENT
  Sex: Female
  Weight: 84.81 kg

DRUGS (3)
  1. NUVARING [Suspect]
     Active Substance: ETHINYL ESTRADIOL\ETONOGESTREL
     Dosage: 1 RING EVERY 3 WEEKS, 1 WEEK OFF RING
     Route: 067
     Dates: start: 201601, end: 20160519
  2. NUVARING [Suspect]
     Active Substance: ETHINYL ESTRADIOL\ETONOGESTREL
     Indication: CONTRACEPTION
     Dosage: 1 RING EVERY 3 WEEKS, 1 WEEK OFF RING
     Route: 067
     Dates: start: 20140131, end: 20140919
  3. LISINOPRIL. [Concomitant]
     Active Substance: LISINOPRIL
     Indication: HYPERTENSION
     Dosage: 20 MG, QD
     Route: 048
     Dates: start: 201310

REACTIONS (9)
  - Pulmonary embolism [Unknown]
  - Hypertension [Unknown]
  - Libido decreased [Unknown]
  - Pain in extremity [Unknown]
  - Urinary tract infection [Unknown]
  - Smear cervix abnormal [Unknown]
  - Deep vein thrombosis [Unknown]
  - Anxiety disorder [Unknown]
  - Viral infection [Unknown]

NARRATIVE: CASE EVENT DATE: 20140623
